FAERS Safety Report 9932100 (Version 1)
Quarter: 2014Q1

REPORT INFORMATION
  Report Type: Spontaneous
  Country: US (occurrence: US)
  Receive Date: 20140228
  Receipt Date: 20140228
  Transmission Date: 20141002
  Serious: No
  Sender: FDA-Public Use
  Company Number: US-ABBVIE-13P-163-1104180-00

PATIENT
  Age: 57 Year
  Sex: Male
  Weight: 102 kg

DRUGS (11)
  1. ANDROGEL [Suspect]
     Indication: BLOOD TESTOSTERONE DECREASED
     Dates: start: 201107
  2. ANDROGEL [Suspect]
  3. ANDROGEL [Suspect]
  4. ANDROGEL [Suspect]
     Indication: BLOOD TESTOSTERONE DECREASED
  5. ANDROGEL [Suspect]
     Dates: end: 201301
  6. ANDROGEL [Suspect]
     Dates: start: 201301
  7. HYDROCHLOROTHIAZIDE [Concomitant]
     Indication: PRODUCT USED FOR UNKNOWN INDICATION
  8. AVAPRO [Concomitant]
     Indication: PRODUCT USED FOR UNKNOWN INDICATION
  9. METFORMIN [Concomitant]
     Indication: DIABETES MELLITUS
  10. VITAMINS [Concomitant]
     Indication: VITAMIN SUPPLEMENTATION
  11. CRESTOR [Concomitant]
     Indication: BLOOD CHOLESTEROL INCREASED

REACTIONS (2)
  - Drug prescribing error [Unknown]
  - Blood testosterone decreased [Not Recovered/Not Resolved]
